FAERS Safety Report 9220989 (Version 1)
Quarter: 2013Q2

REPORT INFORMATION
  Report Type: Spontaneous
  Country: US (occurrence: CA)
  Receive Date: 20130409
  Receipt Date: 20130409
  Transmission Date: 20140414
  Serious: Yes (Other)
  Sender: FDA-Public Use
  Company Number: US-BAYER-2013-044347

PATIENT
  Age: 8 Week
  Sex: 0

DRUGS (1)
  1. MIRENA [Suspect]
     Route: 063

REACTIONS (4)
  - Agitation [None]
  - Feeding disorder neonatal [None]
  - Weight gain poor [None]
  - Exposure during breast feeding [None]
